FAERS Safety Report 5688836-0 (Version None)
Quarter: 2008Q1

REPORT INFORMATION
  Report Type: 
  Country: None (occurrence: None)
  Receive Date: 20080331
  Receipt Date: 20020909
  Transmission Date: 20080703
  Serious: Yes (Death, Hospitalization)
  Sender: FDA-Public Use
  Company Number: FR-ROCHE-320916

PATIENT
  Age: 68 Year
  Sex: Male

DRUGS (6)
  1. FLUMAZENIL [Suspect]
     Indication: REVERSAL OF SEDATION
     Route: 042
     Dates: start: 20020904, end: 20020904
  2. CLOPIXOL [Suspect]
     Indication: DRUG USE FOR UNKNOWN INDICATION
     Route: 030
     Dates: start: 20020903, end: 20020903
  3. TRANXENE [Suspect]
     Indication: DRUG USE FOR UNKNOWN INDICATION
     Route: 030
     Dates: start: 20020903, end: 20020904
  4. PHENERGAN HCL [Suspect]
     Indication: DRUG USE FOR UNKNOWN INDICATION
     Route: 042
     Dates: start: 20020903, end: 20020904
  5. EQUANIL [Suspect]
     Indication: DRUG USE FOR UNKNOWN INDICATION
     Route: 042
     Dates: start: 20020903, end: 20020903
  6. PIPORTIL [Concomitant]
     Route: 030

REACTIONS (3)
  - BLOOD PRESSURE INCREASED [None]
  - CARDIO-RESPIRATORY ARREST [None]
  - OVERDOSE [None]
